FAERS Safety Report 5013437-7 (Version None)
Quarter: 2006Q2

REPORT INFORMATION
  Report Type: 
  Country: None (occurrence: None)
  Receive Date: 20060530
  Receipt Date: 20060524
  Transmission Date: 20061013
  Serious: Yes (Hospitalization, Disabling)
  Sender: FDA-Public Use
  Company Number: JP-AVENTIS-200611611JP

PATIENT
  Age: 60 Year
  Sex: Male

DRUGS (2)
  1. GLIMEPIRIDE [Suspect]
     Indication: DIABETES MELLITUS
     Route: 048
  2. ACARBOSE [Concomitant]
     Indication: DIABETES MELLITUS
     Route: 048

REACTIONS (10)
  - ANGINA PECTORIS [None]
  - BLOOD PRESSURE INCREASED [None]
  - DIARRHOEA [None]
  - DYSLALIA [None]
  - GLYCOSYLATED HAEMOGLOBIN INCREASED [None]
  - HEMIPLEGIA [None]
  - HYPOGLYCAEMIC COMA [None]
  - LACUNAR INFARCTION [None]
  - NASOPHARYNGITIS [None]
  - SENSORY DISTURBANCE [None]
